FAERS Safety Report 6181074-7 (Version None)
Quarter: 2009Q2

REPORT INFORMATION
  Report Type: 
  Country: None (occurrence: None)
  Receive Date: 20090504
  Receipt Date: 20090504
  Transmission Date: 20091009
  Serious: Yes (Other)
  Sender: FDA-Public Use
  Company Number: None

PATIENT
  Age: 17 Year
  Sex: Male

DRUGS (2)
  1. NEOSTIGMINE NDC:10019-0270-39 LOT# 118057 EXP DATE: 5/10 [Suspect]
     Indication: ARRHYTHMIA
  2. GLYCOPYRROLATE [Suspect]

REACTIONS (1)
  - BRADYCARDIA [None]
